FAERS Safety Report 5799445-7 (Version None)
Quarter: 2008Q3

REPORT INFORMATION
  Report Type: 
  Country: None (occurrence: None)
  Receive Date: 20080703
  Receipt Date: 20080626
  Transmission Date: 20090109
  Serious: Yes (Death, Other)
  Sender: FDA-Public Use
  Company Number: JP-BRISTOL-MYERS SQUIBB COMPANY-14235485

PATIENT
  Age: 68 Year
  Sex: Male

DRUGS (2)
  1. ENDOXAN TABS [Suspect]
     Indication: INTERSTITIAL LUNG DISEASE
     Route: 048
     Dates: start: 20050714
  2. ENDOXAN TABS [Suspect]
     Indication: OFF LABEL USE
     Route: 048
     Dates: start: 20050714

REACTIONS (1)
  - LUNG SQUAMOUS CELL CARCINOMA STAGE UNSPECIFIED [None]
